FAERS Safety Report 7310881-X (Version None)
Quarter: 2011Q1

REPORT INFORMATION
  Report Type: 
  Country: None (occurrence: None)
  Receive Date: 20110224
  Receipt Date: 20110216
  Transmission Date: 20110831
  Serious: Yes (Other)
  Sender: FDA-Public Use
  Company Number: JP-JNJFOC-20101208004

PATIENT
  Sex: Female
  Weight: 63 kg

DRUGS (19)
  1. DOXORUBICIN HCL [Suspect]
     Dosage: CYCLE 2
     Route: 042
  2. MUCOSTA [Concomitant]
     Indication: PROPHYLAXIS
     Route: 048
  3. GENTACIN [Concomitant]
     Indication: PRODUCT USED FOR UNKNOWN INDICATION
     Route: 061
  4. DOXORUBICIN HCL [Suspect]
     Indication: OVARIAN CANCER RECURRENT
     Dosage: CYCLE 3
     Route: 042
  5. VOLTAREN [Concomitant]
     Indication: PRODUCT USED FOR UNKNOWN INDICATION
     Route: 048
  6. BIODIASTASE-NATURAL AGENTS COMBINED DRUG [Concomitant]
     Indication: PRODUCT USED FOR UNKNOWN INDICATION
     Route: 048
  7. KYTRIL [Concomitant]
     Indication: PROPHYLAXIS
     Route: 042
  8. DOXORUBICIN HCL [Suspect]
     Dosage: CYCLE 6
     Route: 042
  9. LAXOBERON [Concomitant]
     Indication: PRODUCT USED FOR UNKNOWN INDICATION
     Route: 048
  10. DOXORUBICIN HCL [Suspect]
     Dosage: CYCLE 4
     Route: 042
  11. FULMETA [Concomitant]
     Indication: PRODUCT USED FOR UNKNOWN INDICATION
     Route: 061
  12. DOXORUBICIN HCL [Suspect]
     Dosage: CYCLE 5
     Route: 042
  13. ADJUST-A [Concomitant]
     Indication: PRODUCT USED FOR UNKNOWN INDICATION
     Route: 048
  14. DOXORUBICIN HCL [Suspect]
     Dosage: CYCLE 7
     Route: 042
  15. HALCION [Concomitant]
     Indication: PRODUCT USED FOR UNKNOWN INDICATION
     Route: 048
  16. OXYCONTIN [Concomitant]
     Indication: PRODUCT USED FOR UNKNOWN INDICATION
     Route: 048
  17. DECADRON [Concomitant]
     Indication: PROPHYLAXIS
     Route: 042
  18. DOXORUBICIN HCL [Suspect]
     Dosage: CYCLE 1
     Route: 042
  19. ISODINE GARGLE [Concomitant]
     Indication: PRODUCT USED FOR UNKNOWN INDICATION
     Route: 002

REACTIONS (1)
  - EPIDERMOLYSIS [None]
